FAERS Safety Report 5477824-5 (Version None)
Quarter: 2007Q4

REPORT INFORMATION
  Report Type: 
  Country: None (occurrence: None)
  Receive Date: 20071004
  Receipt Date: 20070925
  Transmission Date: 20080405
  Serious: Yes (Other)
  Sender: FDA-Public Use
  Company Number: US-MERCK-0709USA01568

PATIENT
  Age: 85 Year
  Sex: Female

DRUGS (5)
  1. VYTORIN [Suspect]
     Indication: LOW DENSITY LIPOPROTEIN INCREASED
     Route: 048
     Dates: start: 20070410, end: 20070910
  2. NORVASC [Concomitant]
     Route: 065
  3. HYDRALAZINE [Concomitant]
     Route: 065
  4. BENAZEPRIL HYDROCHLORIDE [Concomitant]
     Route: 065
  5. INDERAL [Concomitant]
     Route: 065

REACTIONS (6)
  - BLISTER [None]
  - FACE OEDEMA [None]
  - OEDEMA [None]
  - OEDEMA PERIPHERAL [None]
  - SWELLING [None]
  - SWELLING FACE [None]
